FAERS Safety Report 17034102 (Version 3)
Quarter: 2020Q1

REPORT INFORMATION
  Report Type: Report from Study
  Country: US (occurrence: US)
  Receive Date: 20191114
  Receipt Date: 20200122
  Transmission Date: 20200409
  Serious: No
  Sender: FDA-Public Use
  Company Number: NVSC2019US035901

PATIENT
  Sex: Male

DRUGS (2)
  1. COSENTYX [Suspect]
     Active Substance: SECUKINUMAB
     Indication: ANKYLOSING SPONDYLITIS
     Dosage: 150 MG, QMO
     Route: 065
  2. COSENTYX [Suspect]
     Active Substance: SECUKINUMAB
     Dosage: (ONCE WEEKLY FOR 5 WEEKS)
     Route: 065
     Dates: start: 20191027, end: 20191027

REACTIONS (3)
  - Chest discomfort [Recovering/Resolving]
  - Pharyngeal swelling [Recovering/Resolving]
  - Chest pain [Unknown]
